FAERS Safety Report 6013780-9 (Version None)
Quarter: 2008Q4

REPORT INFORMATION
  Report Type: 
  Country: None (occurrence: None)
  Receive Date: 20081218
  Receipt Date: 20081218
  Transmission Date: 20090506
  Serious: Yes (Life-Threatening)
  Sender: FDA-Public Use
  Company Number: None

PATIENT
  Sex: Male
  Weight: 83.9154 kg

DRUGS (7)
  1. OXCARBAZEPINE [Suspect]
     Indication: BIPOLAR DISORDER
     Dosage: 300MG, THEN 600 MG TITRATION BID PO
     Route: 048
     Dates: start: 20080610, end: 20080620
  2. OXCARBAZEPINE [Suspect]
     Indication: MOOD ALTERED
     Dosage: 300MG, THEN 600 MG TITRATION BID PO
     Route: 048
     Dates: start: 20080610, end: 20080620
  3. IBUPROFEN [Concomitant]
  4. ACETAMINOPHEN [Suspect]
  5. RISPERIDONE [Concomitant]
  6. RISPERDAL CONSTA [Concomitant]
  7. SEROQUEL [Concomitant]

REACTIONS (1)
  - BLOOD SODIUM DECREASED [None]
